FAERS Safety Report 26037271 (Version 1)
Quarter: 2025Q4

REPORT INFORMATION
  Report Type: Spontaneous
  Country: US (occurrence: US)
  Receive Date: 20251112
  Receipt Date: 20251112
  Transmission Date: 20260118
  Serious: Yes (Other)
  Sender: FARMAKEIO OUTSOURCING LLC
  Company Number: US-FarmaKeio Outsourcing, LLC-2188419

PATIENT
  Age: 67 Year
  Sex: Male
  Weight: 130.45 kg

DRUGS (4)
  1. TESTOSTERONE [Suspect]
     Active Substance: TESTOSTERONE
     Indication: Fatigue
     Dates: start: 20250611
  2. TESTOSTERONE [Suspect]
     Active Substance: TESTOSTERONE
     Indication: Arthralgia
  3. TESTOSTERONE [Suspect]
     Active Substance: TESTOSTERONE
     Indication: Hypogonadism male
  4. TESTOSTERONE [Suspect]
     Active Substance: TESTOSTERONE
     Indication: Libido decreased

REACTIONS (1)
  - Implant site infection [Recovering/Resolving]
